FAERS Safety Report 6472651-4 (Version None)
Quarter: 2009Q4

REPORT INFORMATION
  Report Type: 
  Country: None (occurrence: None)
  Receive Date: 20091203
  Receipt Date: 20081210
  Transmission Date: 20100525
  Serious: No
  Sender: FDA-Public Use
  Company Number: US-AMGEN-KDL323305

PATIENT
  Sex: Male

DRUGS (1)
  1. ENBREL [Suspect]
     Indication: ANKYLOSING SPONDYLITIS
     Route: 058
     Dates: start: 20080401

REACTIONS (5)
  - BRONCHIAL IRRITATION [None]
  - COUGH [None]
  - IMPAIRED HEALING [None]
  - RHINORRHOEA [None]
  - TENDON RUPTURE [None]
